APPROVED DRUG PRODUCT: CODEINE SULFATE
Active Ingredient: CODEINE SULFATE
Strength: 60MG
Dosage Form/Route: TABLET;ORAL
Application: A203046 | Product #003 | TE Code: AB
Applicant: LANNETT CO INC
Approved: Jun 13, 2014 | RLD: No | RS: No | Type: RX